FAERS Safety Report 7087437 (Version 7)
Quarter: 2012Q4

REPORT INFORMATION
  Report Type: 
  Country: CA (occurrence: CA)
  Receive Date: 20090821
  Receipt Date: 20121101
  Transmission Date: 20130627
  Serious: Yes (Death, Hospitalization, Other)
  Sender: FDA-Public Use
  Company Number: PHHY2009CA10609

PATIENT
  Sex: Male

DRUGS (4)
  1. SANDOSTATIN LAR [Suspect]
     Indication: CARCINOID TUMOUR
     Dosage: 20 mg, every 4 weeks
     Route: 030
     Dates: start: 20061123
  2. CIPRO [Concomitant]
     Dosage: 500 mg, BID
  3. ANTIHYPERTENSIVE DRUGS [Concomitant]
  4. ENSURE [Concomitant]

REACTIONS (31)
  - Death [Fatal]
  - Rectal haemorrhage [Recovered/Resolved]
  - Haemorrhoids [Unknown]
  - Malaise [Unknown]
  - Pruritus [Unknown]
  - Scrotal infection [Recovering/Resolving]
  - Scrotal pain [Unknown]
  - Groin pain [Unknown]
  - Pelvic pain [Unknown]
  - Ascites [Unknown]
  - Abdominal distension [Unknown]
  - Abdominal pain [Unknown]
  - Abdominal discomfort [Unknown]
  - Decreased appetite [Unknown]
  - Paracentesis [Unknown]
  - Weight decreased [Unknown]
  - Blood pressure decreased [Unknown]
  - Urine output decreased [Unknown]
  - General physical health deterioration [Unknown]
  - Depressed mood [Unknown]
  - Anal pruritus [Unknown]
  - Blood pressure systolic increased [Unknown]
  - Gout [Unknown]
  - Pain in extremity [Unknown]
  - Heart rate increased [Unknown]
  - Constipation [Unknown]
  - Dyspnoea [Unknown]
  - Asthenia [Unknown]
  - Heart rate decreased [Unknown]
  - Frequent bowel movements [Unknown]
  - Dizziness [Unknown]
